FAERS Safety Report 5563953-4 (Version None)
Quarter: 2007Q4

REPORT INFORMATION
  Report Type: 
  Country: None (occurrence: None)
  Receive Date: 20071217
  Receipt Date: 20071205
  Transmission Date: 20080405
  Serious: Yes (Other)
  Sender: FDA-Public Use
  Company Number: LB-PFIZER INC-2007063914

PATIENT
  Age: 68 Year
  Sex: Male

DRUGS (2)
  1. VIAGRA [Suspect]
     Indication: ERECTILE DYSFUNCTION
     Route: 048
     Dates: start: 20070301, end: 20070601
  2. ACETYLSALICYLIC ACID SRT [Concomitant]
     Route: 048

REACTIONS (2)
  - SCOTOMA [None]
  - VISION BLURRED [None]
